FAERS Safety Report 9417882 (Version 2)
Quarter: 2013Q3

REPORT INFORMATION
  Report Type: Spontaneous
  Country: US (occurrence: US)
  Receive Date: 20130724
  Receipt Date: 20130730
  Transmission Date: 20140515
  Serious: Yes (Hospitalization)
  Sender: FDA-Public Use
  Company Number: US-BAXTER-2013BAX028943

PATIENT
  Age: 69 Year
  Sex: Male

DRUGS (1)
  1. 0.9% SODIUM CHLORIDE INJECTION [Suspect]
     Indication: HAEMODIALYSIS
     Route: 042
     Dates: start: 2007

REACTIONS (2)
  - Cardiac disorder [Not Recovered/Not Resolved]
  - Infection [Not Recovered/Not Resolved]
